FAERS Safety Report 6043653-7 (Version None)
Quarter: 2009Q1

REPORT INFORMATION
  Report Type: 
  Country: None (occurrence: None)
  Receive Date: 20090115
  Receipt Date: 20090115
  Transmission Date: 20090719
  Serious: Yes (Other)
  Sender: FDA-Public Use
  Company Number: None

PATIENT
  Age: 26 Year
  Sex: Female
  Weight: 53.5244 kg

DRUGS (2)
  1. SINGULAIR [Suspect]
     Indication: ASTHMA
     Dosage: ONCE DAILY AT BEDTIME PO
     Route: 048
     Dates: start: 20090108, end: 20090112
  2. SINGULAIR [Suspect]
     Indication: HYPERSENSITIVITY
     Dosage: ONCE DAILY AT BEDTIME PO
     Route: 048
     Dates: start: 20090108, end: 20090112

REACTIONS (8)
  - CHEST DISCOMFORT [None]
  - DIZZINESS [None]
  - DRUG HYPERSENSITIVITY [None]
  - DYSPNOEA [None]
  - EYE SWELLING [None]
  - GAIT DISTURBANCE [None]
  - LIP SWELLING [None]
  - SWELLING FACE [None]
